FAERS Safety Report 14704821 (Version 1)
Quarter: 2018Q2

REPORT INFORMATION
  Report Type: Spontaneous
  Country: JP (occurrence: JP)
  Receive Date: 20180402
  Receipt Date: 20180402
  Transmission Date: 20180711
  Serious: Yes (Other)
  Sender: FDA-Public Use
  Company Number: JP-PFIZER INC-2018126816

PATIENT

DRUGS (2)
  1. SELARA 25MG [Suspect]
     Active Substance: EPLERENONE
     Dosage: 50 MG, 1X/DAY (TWO TABLETS OF 25 MG)
     Route: 048
  2. SALIVEHT [Concomitant]

REACTIONS (1)
  - Pulmonary oedema [Unknown]
